FAERS Safety Report 4586580-4 (Version None)
Quarter: 2005Q1

REPORT INFORMATION
  Report Type: 
  Country: None (occurrence: None)
  Receive Date: 20050218
  Receipt Date: 20040430
  Transmission Date: 20050727
  Serious: No
  Sender: FDA-Public Use
  Company Number: US-BRISTOL-MYERS SQUIBB COMPANY-12577243

PATIENT
  Age: 66 Year
  Sex: Female
  Weight: 71 kg

DRUGS (5)
  1. CARBOPLATIN [Suspect]
     Dates: start: 20040401
  2. TAXOL [Suspect]
     Dates: start: 20040401
  3. BENADRYL [Concomitant]
     Dates: start: 20040401
  4. TAGAMET [Concomitant]
     Dates: start: 20040401
  5. CHOLESTEROL MEDICATION [Concomitant]

REACTIONS (4)
  - ALOPECIA [None]
  - LARYNGITIS [None]
  - MYALGIA [None]
  - WEIGHT DECREASED [None]
